FAERS Safety Report 6888031-3 (Version None)
Quarter: 2010Q3

REPORT INFORMATION
  Report Type: 
  Country: None (occurrence: None)
  Receive Date: 20100730
  Receipt Date: 20100723
  Transmission Date: 20110219
  Serious: Yes (Other)
  Sender: FDA-Public Use
  Company Number: B0666799A

PATIENT
  Sex: Male

DRUGS (6)
  1. LAMOTRIGINE [Suspect]
  2. LAMOTRIGINE [Suspect]
  3. LAMOTRIGINE [Suspect]
  4. CLOZARIL [Suspect]
     Indication: SCHIZOPHRENIA
     Route: 048
     Dates: start: 20080923
  5. CLOZARIL [Suspect]
     Route: 048
  6. CLOZARIL [Suspect]
     Route: 048

REACTIONS (2)
  - ANTIPSYCHOTIC DRUG LEVEL INCREASED [None]
  - SCHIZOPHRENIA [None]
